FAERS Safety Report 5254733-8 (Version None)
Quarter: 2007Q1

REPORT INFORMATION
  Report Type: 
  Country: None (occurrence: None)
  Receive Date: 20070228
  Receipt Date: 20070215
  Transmission Date: 20070707
  Serious: Yes (Other)
  Sender: FDA-Public Use
  Company Number: 2007US000384

PATIENT
  Age: 50 Year
  Sex: Female
  Weight: 59 kg

DRUGS (18)
  1. PROGRAF [Suspect]
     Indication: PROPHYLAXIS AGAINST TRANSPLANT REJECTION
  2. PROCRIT [Suspect]
     Indication: NEPHROGENIC ANAEMIA
     Dosage: SEE IMAGE
     Route: 058
     Dates: start: 20060621, end: 20061101
  3. PROCRIT [Suspect]
     Indication: NEPHROGENIC ANAEMIA
     Dosage: SEE IMAGE
     Route: 058
     Dates: start: 20061114, end: 20061209
  4. PROCRIT [Suspect]
     Indication: NEPHROGENIC ANAEMIA
     Dosage: SEE IMAGE
     Route: 058
     Dates: start: 20061209
  5. PROCRIT [Suspect]
  6. DILTIAZEM [Concomitant]
  7. ATENOLOL [Concomitant]
  8. LASIX [Concomitant]
  9. LISINOPRIL (LISINOPRIL DIHYDRATE) [Concomitant]
  10. PREDNISONE TAB [Concomitant]
  11. CALCITONIN L (CALCITONIN SALMON) [Concomitant]
  12. MULTIVITAMIN AND MINERAL (ASCORBIC ACID, FERROUS FUMARATE,K MAGNESIUM [Concomitant]
  13. CLONIDINE [Concomitant]
  14. PEPCID [Concomitant]
  15. CHOLESTEROL- AND TRIGLYCERIDE REDUCERS [Concomitant]
  16. SODIUM BICARBONATE IN PLASTIC CONTAINER [Concomitant]
  17. PROGESTERONS AND ESTROGENS IN COMBINATION [Concomitant]
  18. ROCALTROL [Concomitant]

REACTIONS (4)
  - DRUG INEFFECTIVE [None]
  - DRUG SPECIFIC ANTIBODY ABSENT [None]
  - HAEMOGLOBIN DECREASED [None]
  - PHARMACEUTICAL PRODUCT COMPLAINT [None]
